FAERS Safety Report 16667494 (Version 2)
Quarter: 2020Q3

REPORT INFORMATION
  Report Type: Spontaneous
  Country: US (occurrence: US)
  Receive Date: 20190805
  Receipt Date: 20190817
  Transmission Date: 20201104
  Serious: Yes (Hospitalization, Other)
  Sender: FDA-Public Use
  Company Number: US-MICRO LABS LIMITED-ML2019-01811

PATIENT
  Age: 74 Year
  Sex: Female

DRUGS (17)
  1. SODIUM CHLORIDE. [Concomitant]
     Active Substance: SODIUM CHLORIDE
     Dosage: NORMAL SALINE
  2. LOSARTAN. [Concomitant]
     Active Substance: LOSARTAN
     Dosage: 100 MG DAILY,
  3. KRILL OIL [Suspect]
     Active Substance: DIETARY SUPPLEMENT\KRILL OIL
     Dosage: 2000 MG ONCE DAILY, INCLUDING IN THE MORNING OF HER PLANNED PROCEDURE.
  4. IBUPROFEN. [Suspect]
     Active Substance: IBUPROFEN
     Indication: RADICULAR PAIN
     Dosage: 400 MG TWICE DAILY FROM THE TIME OF THE ONSET OF HER RADICULAR PAIN
  5. LIDOCAINE. [Concomitant]
     Active Substance: LIDOCAINE
     Dosage: 1ML OF 1% LIODCAINE
  6. DEXAMETHASONE. [Concomitant]
     Active Substance: DEXAMETHASONE
     Dosage: 10MG
  7. MULTIVITAMIN [Concomitant]
     Active Substance: VITAMINS
  8. LIDOCAINE. [Concomitant]
     Active Substance: LIDOCAINE
     Dosage: 10 CM3 OF 1% LIDOCAINE
  9. CETRIZINE [Concomitant]
     Active Substance: CETIRIZINE HYDROCHLORIDE
     Dosage: 5 MG DAILY,
  10. KETOROLAC [Suspect]
     Active Substance: KETOROLAC TROMETHAMINE
     Dosage: IM KETORORLAC 30 MG
     Route: 030
  11. BUPIVACAINE. [Concomitant]
     Active Substance: BUPIVACAINE
     Dosage: 5 CM3 OF 0.25%
  12. IOHEXOL [Concomitant]
     Active Substance: IOHEXOL
  13. CARBIDOPA/LEVODOPA [Concomitant]
     Active Substance: CARBIDOPA\LEVODOPA
     Dosage: 25?100 MG THREE TIMES DAILY
  14. ATORVASTATIN [Concomitant]
     Active Substance: ATORVASTATIN
     Dosage: 10 MG DAILY
  15. PREGABALIN. [Concomitant]
     Active Substance: PREGABALIN
  16. SELEGILINE [Concomitant]
     Active Substance: SELEGILINE
     Dosage: 5 MG DAILY
  17. CALCIUM CARBONATE? VITAMIN D2 [Concomitant]
     Dosage: 1250 MG 200 U DAILY

REACTIONS (1)
  - Extradural haematoma [Recovered/Resolved]
